FAERS Safety Report 24259461 (Version 3)
Quarter: 2025Q1

REPORT INFORMATION
  Report Type: Spontaneous
  Country: JP (occurrence: JP)
  Receive Date: 20240828
  Receipt Date: 20250203
  Transmission Date: 20250408
  Serious: Yes (Death, Hospitalization, Other)
  Sender: ALEXION PHARMACEUTICALS
  Company Number: 2024A192412

PATIENT
  Age: 79 Year
  Weight: 48 kg

DRUGS (7)
  1. LYNPARZA [Suspect]
     Active Substance: OLAPARIB
     Indication: Hormone-refractory prostate cancer
  2. PREDONINE [Concomitant]
     Active Substance: PREDNISOLONE
     Indication: Hormone-refractory prostate cancer
     Dosage: 10 MILLIGRAM, QD
  3. CALCIUM CARBONATE\CHOLECALCIFEROL\MAGNESIUM CARBONATE [Concomitant]
     Active Substance: CALCIUM CARBONATE\CHOLECALCIFEROL\MAGNESIUM CARBONATE
     Indication: Hormone-refractory prostate cancer
     Dosage: 2 DOSAGE FORM, QD
  4. METHYLCOBALAMIN [Concomitant]
     Active Substance: METHYLCOBALAMIN
     Indication: Neuropathy peripheral
     Dosage: 500 MILLIGRAM, TID
  5. REBAMIPIDE [Concomitant]
     Active Substance: REBAMIPIDE
     Indication: Gastric cancer
     Dosage: 100 MILLIGRAM, BID
  6. EPINASTINE [Concomitant]
     Active Substance: EPINASTINE
  7. VONOPRAZAN FUMARATE [Concomitant]
     Active Substance: VONOPRAZAN FUMARATE
     Indication: Gastric cancer
     Dosage: 10 MILLIGRAM, QD

REACTIONS (2)
  - COVID-19 pneumonia [Unknown]
  - Interstitial lung disease [Fatal]
